FAERS Safety Report 11347789 (Version 1)
Quarter: 2015Q3

REPORT INFORMATION
  Report Type: Spontaneous
  Country: US (occurrence: US)
  Receive Date: 20150803
  Receipt Date: 20150803
  Transmission Date: 20151125
  Serious: No
  Sender: FDA-Public Use
  Company Number: US-ELI_LILLY_AND_COMPANY-US201110002218

PATIENT
  Age: 38 Year
  Sex: Male

DRUGS (6)
  1. ZYPREXA [Suspect]
     Active Substance: OLANZAPINE
     Indication: BIPOLAR DISORDER
     Dosage: 20 MG, QD
     Route: 065
     Dates: start: 200210, end: 2003
  2. ZYPREXA [Suspect]
     Active Substance: OLANZAPINE
     Dosage: 15 MG, PRN
     Route: 065
     Dates: start: 200210, end: 2003
  3. BENZODIAZEPINE DERIVATIVES [Concomitant]
     Active Substance: BENZODIAZEPINE
  4. DEPAKOTE [Concomitant]
     Active Substance: DIVALPROEX SODIUM
  5. OPIOIDS [Concomitant]
     Active Substance: UNSPECIFIED INGREDIENT
  6. NSAID^S [Concomitant]
     Active Substance: UNSPECIFIED INGREDIENT

REACTIONS (4)
  - Overdose [Recovered/Resolved]
  - Tremor [Unknown]
  - Sedation [Unknown]
  - Weight increased [Unknown]

NARRATIVE: CASE EVENT DATE: 200210
